FAERS Safety Report 21295007 (Version 1)
Quarter: 2022Q3

REPORT INFORMATION
  Report Type: Spontaneous
  Country: US (occurrence: US)
  Receive Date: 20220905
  Receipt Date: 20220905
  Transmission Date: 20221027
  Serious: No
  Sender: FDA-Public Use
  Company Number: US-009507513-2208USA007143

PATIENT
  Age: 66 Year
  Sex: Male

DRUGS (3)
  1. CANCIDAS [Suspect]
     Active Substance: CASPOFUNGIN ACETATE
     Indication: Infectious pleural effusion
  2. VANCOMYCIN [Suspect]
     Active Substance: VANCOMYCIN
     Indication: Infectious pleural effusion
  3. MEROPENEM [Suspect]
     Active Substance: MEROPENEM
     Indication: Infectious pleural effusion

REACTIONS (1)
  - Drug ineffective [Unknown]
